FAERS Safety Report 8984113 (Version 1)
Quarter: 2012Q4

REPORT INFORMATION
  Report Type: Spontaneous
  Country: US (occurrence: None)
  Receive Date: 20121213
  Receipt Date: 20121213
  Transmission Date: 20130627
  Serious: Yes (Hospitalization, Disabling)
  Sender: FDA-Public Use
  Company Number: 2012-14713

PATIENT
  Age: 90 Year
  Sex: Male

DRUGS (6)
  1. AMIODARONE HYDROCHLORIDE [Suspect]
     Indication: ARRHYTHMIA PROPHYLAXIS
  2. AMIODARONE HYDROCHLORIDE [Suspect]
     Indication: ARRHYTHMIA PROPHYLAXIS
  3. CLONAZEPAM [Suspect]
     Indication: DRUG USE FOR UNKNOWN INDICATION
  4. CLONAZEPAM [Suspect]
     Indication: DRUG USE FOR UNKNOWN INDICATION
  5. LEVETIRACETAM [Suspect]
     Indication: DRUG USE FOR UNKNOWN INDICATION
  6. DIGOXIN [Suspect]
     Indication: ARRHYTHMIA PROPHYLAXIS

REACTIONS (4)
  - Myoclonus [None]
  - Somnolence [None]
  - Somnolence [None]
  - Fatigue [None]
